FAERS Safety Report 6870574-X (Version None)
Quarter: 2010Q3

REPORT INFORMATION
  Report Type: 
  Country: None (occurrence: None)
  Receive Date: 20100721
  Receipt Date: 20100721
  Transmission Date: 20110219
  Serious: No
  Sender: FDA-Public Use
  Company Number: None

PATIENT
  Sex: Female
  Weight: 84.369 kg

DRUGS (13)
  1. EPOGEN [Suspect]
     Indication: ANAEMIA
     Dosage: 2813 U QW SC (057)
     Dates: start: 20100603, end: 20100706
  2. ADVAIR DISKUS 100/50 [Concomitant]
  3. ASPIRIN [Concomitant]
  4. CELEXA [Concomitant]
  5. LASIX [Concomitant]
  6. SINGULAIR [Concomitant]
  7. ALBUTEROL [Concomitant]
  8. DILTIAZEM [Concomitant]
  9. ZOCOR [Concomitant]
  10. GLUCOPHAGE [Concomitant]
  11. VALSARTAN [Concomitant]
  12. AMITRIPTILINE [Concomitant]
  13. SPIRIVA W/ HANDI [Concomitant]

REACTIONS (3)
  - CELLULITIS [None]
  - OEDEMA PERIPHERAL [None]
  - PAIN IN EXTREMITY [None]
